FAERS Safety Report 7046495-9 (Version None)
Quarter: 2010Q4

REPORT INFORMATION
  Report Type: 
  Country: None (occurrence: None)
  Receive Date: 20101014
  Receipt Date: 20101004
  Transmission Date: 20110411
  Serious: Yes (Other)
  Sender: FDA-Public Use
  Company Number: PHHY2010US66118

PATIENT
  Sex: Female

DRUGS (4)
  1. RECLAST [Suspect]
  2. WARFARIN SODIUM [Concomitant]
  3. COUREG [Concomitant]
  4. DIGOXIN [Concomitant]

REACTIONS (1)
  - ARTHROPATHY [None]
